FAERS Safety Report 14559469 (Version 3)
Quarter: 2018Q2

REPORT INFORMATION
  Report Type: Report from Study
  Country: AU (occurrence: AU)
  Receive Date: 20180221
  Receipt Date: 20180402
  Transmission Date: 20180711
  Serious: Yes (Hospitalization, Other)
  Sender: FDA-Public Use
  Company Number: AU-MYLANLABS-2017M1080310

PATIENT
  Age: 26 Year
  Sex: Male
  Weight: 90 kg

DRUGS (6)
  1. HYOSCINE HYDROBROMIDE [Concomitant]
     Active Substance: SCOPOLAMINE
     Indication: SALIVARY HYPERSECRETION
     Dosage: 300 ?G, BID
     Route: 048
  2. CLOZARIL [Suspect]
     Active Substance: CLOZAPINE
     Dosage: 200 MG, UNK
     Route: 048
     Dates: start: 20171214
  3. CLOZARIL [Suspect]
     Active Substance: CLOZAPINE
     Dosage: 200 MG, UNK
     Route: 048
  4. RISPERIDONE. [Concomitant]
     Active Substance: RISPERIDONE
     Indication: PRODUCT USED FOR UNKNOWN INDICATION
     Dosage: 25 MG, UNK
     Route: 030
     Dates: start: 20171225
  5. CLOZARIL [Suspect]
     Active Substance: CLOZAPINE
     Indication: SCHIZOPHRENIA
     Dosage: 12.5 MG, UNK
     Route: 048
     Dates: start: 20171101
  6. METFORMIN [Concomitant]
     Active Substance: METFORMIN HYDROCHLORIDE
     Indication: PRODUCT USED FOR UNKNOWN INDICATION
     Dosage: 500 MG, UNK
     Route: 048
     Dates: start: 20180104

REACTIONS (12)
  - Syncope [Unknown]
  - Hypotension [Unknown]
  - Pulmonary valve incompetence [Unknown]
  - Hospitalisation [Unknown]
  - Myocarditis [Unknown]
  - Ejection fraction decreased [Unknown]
  - General physical condition abnormal [Recovered/Resolved]
  - Dizziness [Unknown]
  - Loss of consciousness [Recovered/Resolved]
  - Sinus tachycardia [Recovering/Resolving]
  - Tricuspid valve incompetence [Unknown]
  - Bundle branch block right [Unknown]

NARRATIVE: CASE EVENT DATE: 2017
